FAERS Safety Report 23790486 (Version 1)
Quarter: 2024Q2

REPORT INFORMATION
  Report Type: Spontaneous
  Country: US (occurrence: None)
  Receive Date: 20240427
  Receipt Date: 20240427
  Transmission Date: 20240716
  Serious: No
  Sender: FDA-Public Use
  Company Number: 2024A095132

PATIENT

DRUGS (2)
  1. BUDESONIDE [Suspect]
     Active Substance: BUDESONIDE
     Route: 055
  2. DUPIXENT [Suspect]
     Active Substance: DUPILUMAB
     Dates: start: 202311

REACTIONS (5)
  - Adrenal disorder [Unknown]
  - Choking sensation [Unknown]
  - Injection site reaction [Unknown]
  - Dry eye [Unknown]
  - Product dose omission issue [Unknown]
